FAERS Safety Report 6692421-1 (Version None)
Quarter: 2010Q2

REPORT INFORMATION
  Report Type: 
  Country: None (occurrence: None)
  Receive Date: 20100412
  Receipt Date: 20100331
  Transmission Date: 20101027
  Serious: Yes (Death)
  Sender: FDA-Public Use
  Company Number: THYM-1001347

PATIENT
  Age: 27 Year
  Sex: Female
  Weight: 100 kg

DRUGS (18)
  1. THYMOGLOBULIN [Suspect]
     Indication: BONE MARROW CONDITIONING REGIMEN
     Dosage: 90 MG, QD, INTRAVENOUS
     Route: 042
     Dates: start: 20091113, end: 20091114
  2. METHYLPREDNISOLONE [Concomitant]
  3. GRANISETRON HYDROCHLORIDE (GRANISETRON HYDROCHLORIDE) [Concomitant]
  4. FLUDARABINE PHOSPHATE [Concomitant]
  5. CYCLOPHOSPHAMIDE [Concomitant]
  6. MESNA [Concomitant]
  7. MICAFUNGIN SODIUM (MICAFUNGIN SODIUM) [Concomitant]
  8. PAZUFLOXACIN (PAZUFLOXACIN) [Concomitant]
  9. PENTAZOCINE LACTATE [Concomitant]
  10. CHLORPHENIRAMINE MALEATE [Concomitant]
  11. HYDROCORTISONE SODIUM PHOSPHATE (HYDROCORTISONE SODIUM PHOSPHATE) [Concomitant]
  12. CYCLOSPORINE [Concomitant]
  13. METHOTREXATE [Concomitant]
  14. TEICOPLANIN (TEICOPLANIN) [Concomitant]
  15. PROCHLORPERAZINE MALEATE [Concomitant]
  16. METOCLOPRAMIDE (METOCLOPRAMIDE) [Concomitant]
  17. SODIUM BICARBONATE IN PLASTIC CONTAINER [Concomitant]
  18. FUROSEMIDE [Concomitant]

REACTIONS (6)
  - ALTERED STATE OF CONSCIOUSNESS [None]
  - BLOOD PRESSURE DECREASED [None]
  - CONTINUOUS HAEMODIAFILTRATION [None]
  - GRAND MAL CONVULSION [None]
  - HYPERAMMONAEMIA [None]
  - RESPIRATORY ARREST [None]
